FAERS Safety Report 12538147 (Version 14)
Quarter: 2020Q3

REPORT INFORMATION
  Report Type: Spontaneous
  Country: US (occurrence: US)
  Receive Date: 20160707
  Receipt Date: 20200708
  Transmission Date: 20201102
  Serious: Yes (Hospitalization, Other)
  Sender: FDA-Public Use
  Company Number: US-BIOMARINAP-US-2016-109332

PATIENT
  Age: 14 Year
  Sex: Female
  Weight: 39.91 kg

DRUGS (6)
  1. ALDURAZYME [Suspect]
     Active Substance: LARONIDASE
     Indication: MUCOPOLYSACCHARIDOSIS I
     Dosage: UNK
     Route: 042
     Dates: start: 20080310
  2. ALDURAZYME [Suspect]
     Active Substance: LARONIDASE
     Dosage: UNK
     Route: 042
  3. ALDURAZYME [Suspect]
     Active Substance: LARONIDASE
     Dosage: 23.2 MILLIGRAM, QW
     Route: 042
     Dates: start: 20161013, end: 20181209
  4. ALDURAZYME [Suspect]
     Active Substance: LARONIDASE
     Dosage: 23.2 MILLIGRAM, QW
     Route: 042
     Dates: start: 20181223
  5. ALDURAZYME [Suspect]
     Active Substance: LARONIDASE
     Dosage: 23.2 MG, UNK
     Route: 042
     Dates: end: 20160815
  6. ALDURAZYME [Suspect]
     Active Substance: LARONIDASE
     Dosage: 23.2 MILLIGRAM, QW
     Route: 042
     Dates: start: 20200303

REACTIONS (21)
  - Exposure during pregnancy [Unknown]
  - Spinal stenosis [Unknown]
  - Loss of consciousness [Unknown]
  - Exposure during pregnancy [Recovered/Resolved]
  - Carpal tunnel syndrome [Unknown]
  - Surgery [Unknown]
  - Blood pressure decreased [Recovering/Resolving]
  - Inguinal hernia [Unknown]
  - Surgery [Recovering/Resolving]
  - Illness [Unknown]
  - Illness [Recovering/Resolving]
  - Feeling cold [Unknown]
  - Sleep apnoea syndrome [Unknown]
  - Pain [Unknown]
  - Spinal cord compression [Not Recovered/Not Resolved]
  - Joint stiffness [Unknown]
  - Social anxiety disorder [Unknown]
  - Complication associated with device [Unknown]
  - Poor venous access [Unknown]
  - Product dose omission issue [Unknown]
  - Dyspnoea [Unknown]

NARRATIVE: CASE EVENT DATE: 2015
